FAERS Safety Report 8035482-X (Version None)
Quarter: 2012Q1

REPORT INFORMATION
  Report Type: 
  Country: None (occurrence: None)
  Receive Date: 20120110
  Receipt Date: 20120110
  Transmission Date: 20120608
  Serious: Yes (Hospitalization)
  Sender: FDA-Public Use
  Company Number: None

PATIENT
  Sex: Female
  Weight: 112 kg

DRUGS (13)
  1. CALCIUM CARBONATE [Suspect]
     Dosage: 630 MG
  2. LASIX [Concomitant]
  3. AGGRENOX [Concomitant]
  4. DUONEB [Concomitant]
  5. XANAX [Concomitant]
  6. COZAAR [Concomitant]
  7. VITAMIN D2 [Suspect]
     Dosage: 500 IU
  8. ZOMETA [Suspect]
     Dosage: 4 MG
  9. ARIMIDEX [Concomitant]
  10. GLIPIZIDE [Concomitant]
  11. LOVENOX [Concomitant]
  12. METFORMIN HCL [Concomitant]
  13. ZOCOR [Concomitant]

REACTIONS (2)
  - DYSPNOEA [None]
  - OEDEMA [None]
